FAERS Safety Report 20989051 (Version 1)
Quarter: 2022Q2

REPORT INFORMATION
  Report Type: Spontaneous
  Country: IT (occurrence: IT)
  Receive Date: 20220621
  Receipt Date: 20220621
  Transmission Date: 20220720
  Serious: Yes (Other)
  Sender: FDA-Public Use
  Company Number: IT-SAKK-2022SA230023AA

PATIENT
  Age: 83 Year
  Sex: Male

DRUGS (1)
  1. LIBTAYO [Suspect]
     Active Substance: CEMIPLIMAB-RWLC
     Indication: Squamous cell carcinoma of skin
     Dosage: 350 MG, Q3W
     Route: 042

REACTIONS (6)
  - Pemphigoid [Recovered/Resolved]
  - Pruritus [Recovered/Resolved]
  - Blister [Recovered/Resolved]
  - Epidermolysis bullosa [Recovered/Resolved]
  - Eosinophilia [Recovered/Resolved]
  - Eosinophilic cellulitis [Recovered/Resolved]
